FAERS Safety Report 20863360 (Version 5)
Quarter: 2025Q4

REPORT INFORMATION
  Report Type: Report from Study
  Country: EU (occurrence: EU)
  Receive Date: 20220523
  Receipt Date: 20251125
  Transmission Date: 20260117
  Serious: Yes (Other)
  Sender: BAUSCH AND LOMB
  Company Number: EU-SA-SAC20220509000347

PATIENT
  Age: 57 Year
  Sex: Female
  Weight: 67 kg

DRUGS (14)
  1. DEXAMETHASONE [Suspect]
     Active Substance: DEXAMETHASONE
     Indication: Plasma cell myeloma refractory
     Dosage: 40 MG, BIW
     Route: 065
     Dates: start: 20211125, end: 20211216
  2. DEXAMETHASONE [Suspect]
     Active Substance: DEXAMETHASONE
     Dosage: 40 MG, BIW
     Route: 065
     Dates: start: 20211223, end: 20220113
  3. DEXAMETHASONE [Suspect]
     Active Substance: DEXAMETHASONE
     Dosage: 40 MG, QW
     Route: 065
     Dates: start: 20220120, end: 20220210
  4. DEXAMETHASONE [Suspect]
     Active Substance: DEXAMETHASONE
     Dosage: 40 MG, QW
     Route: 065
     Dates: start: 20220217, end: 20220310
  5. POMALIDOMIDE [Suspect]
     Active Substance: POMALIDOMIDE
     Indication: Plasma cell myeloma refractory
     Dosage: 4 MG, QD
     Route: 065
     Dates: start: 20211125, end: 20211216
  6. POMALIDOMIDE [Suspect]
     Active Substance: POMALIDOMIDE
     Dosage: 3 MG, BIW
     Route: 065
     Dates: start: 20211223, end: 20220119
  7. POMALIDOMIDE [Suspect]
     Active Substance: POMALIDOMIDE
     Dosage: 4 MG, QD
     Route: 065
     Dates: start: 20220120, end: 20220209
  8. POMALIDOMIDE [Suspect]
     Active Substance: POMALIDOMIDE
     Dosage: 4 MG, QD
     Route: 065
     Dates: start: 20220217
  9. ISATUXIMAB [Suspect]
     Active Substance: ISATUXIMAB
     Indication: Plasma cell myeloma refractory
     Dosage: 10 MG/KG, QW
     Route: 065
     Dates: start: 20211125
  10. ISATUXIMAB [Suspect]
     Active Substance: ISATUXIMAB
     Dosage: 10 MG/KG, QW
     Route: 065
     Dates: start: 20211223, end: 20220106
  11. ISATUXIMAB [Suspect]
     Active Substance: ISATUXIMAB
     Dosage: 10 MG/KG, BIW
     Route: 065
     Dates: start: 20220120, end: 20220203
  12. ISATUXIMAB [Suspect]
     Active Substance: ISATUXIMAB
     Dosage: 10 MG/KG, BIW
     Route: 065
     Dates: start: 20220217, end: 20220303
  13. ISATUXIMAB [Suspect]
     Active Substance: ISATUXIMAB
     Route: 065
  14. LENALIDOMIDE [Suspect]
     Active Substance: LENALIDOMIDE
     Indication: Plasma cell myeloma
     Route: 065

REACTIONS (3)
  - Neutropenia [Recovered/Resolved]
  - Thrombocytopenia [Not Recovered/Not Resolved]
  - Chills [Recovered/Resolved]

NARRATIVE: CASE EVENT DATE: 20211125
